FAERS Safety Report 8277678-8 (Version None)
Quarter: 2012Q2

REPORT INFORMATION
  Report Type: 
  Country: None (occurrence: None)
  Receive Date: 20120412
  Receipt Date: 20120329
  Transmission Date: 20120825
  Serious: Yes (Hospitalization, Other)
  Sender: FDA-Public Use
  Company Number: JP-ROCHE-1048203

PATIENT
  Age: 64 Year
  Sex: Male

DRUGS (5)
  1. AVASTIN [Suspect]
     Indication: RECTAL CANCER METASTATIC
     Dosage: UNCERTAIN DOSAGE AND TEN COURSES
     Route: 041
  2. OXALIPLATIN [Concomitant]
     Indication: RECTAL CANCER METASTATIC
     Dosage: UNCERTAIN DOSAGE AND TEN COURSES
     Route: 041
  3. FLUOROURACIL [Concomitant]
     Dosage: UNCERTAIN DOSAGE AND TEN COURSES
     Route: 041
  4. LEVOLEUCOVORIN CALCIUM [Concomitant]
     Indication: RECTAL CANCER METASTATIC
     Dosage: UNCERTAIN DOSAGE AND TEN COURSES
     Route: 041
  5. FLUOROURACIL [Concomitant]
     Indication: RECTAL CANCER METASTATIC
     Dosage: UNCERTAIN DOSAGE AND TEN COURSES
     Route: 040

REACTIONS (3)
  - ABSCESS INTESTINAL [None]
  - APPENDICITIS PERFORATED [None]
  - PELVIC INFLAMMATORY DISEASE [None]
